FAERS Safety Report 5847662-X (Version None)
Quarter: 2008Q3

REPORT INFORMATION
  Report Type: 
  Country: None (occurrence: None)
  Receive Date: 20080818
  Receipt Date: 20080807
  Transmission Date: 20090109
  Serious: Yes (Hospitalization)
  Sender: FDA-Public Use
  Company Number: SE-JNJFOC-20080801818

PATIENT
  Age: 64 Year
  Sex: Female

DRUGS (8)
  1. REMICADE [Suspect]
     Route: 042
  2. REMICADE [Suspect]
     Indication: RHEUMATOID ARTHRITIS
     Route: 042
  3. METHOTREXATE [Suspect]
     Indication: RHEUMATOID ARTHRITIS
     Route: 048
  4. FOSAMAX [Concomitant]
     Route: 048
  5. SALAZOPYRIN [Concomitant]
     Route: 048
  6. FOLACIN [Concomitant]
     Route: 048
  7. PREDNISONE [Concomitant]
     Route: 048
  8. CALCICHEW-D3 [Concomitant]
     Dosage: 400 IE
     Route: 048

REACTIONS (3)
  - DIZZINESS [None]
  - FALL [None]
  - PNEUMONIA [None]
